FAERS Safety Report 22387102 (Version 1)
Quarter: 2023Q2

REPORT INFORMATION
  Report Type: Spontaneous
  Country: CH (occurrence: CH)
  Receive Date: 20230531
  Receipt Date: 20230531
  Transmission Date: 20230722
  Serious: Yes (Other)
  Sender: FDA-Public Use
  Company Number: CH-009507513-2305CHE009122

PATIENT
  Sex: Male

DRUGS (1)
  1. LETERMOVIR [Suspect]
     Active Substance: LETERMOVIR
     Indication: Cytomegalovirus infection
     Dosage: UNK
     Route: 048

REACTIONS (5)
  - Graft versus host disease [Unknown]
  - Pyrexia [Unknown]
  - Abdominal pain upper [Unknown]
  - Drug effective for unapproved indication [Unknown]
  - Off label use [Unknown]
